FAERS Safety Report 5531424-7 (Version None)
Quarter: 2007Q4

REPORT INFORMATION
  Report Type: 
  Country: None (occurrence: None)
  Receive Date: 20071203
  Receipt Date: 20071121
  Transmission Date: 20080405
  Serious: Yes (Other)
  Sender: FDA-Public Use
  Company Number: GB-JNJFOC-20071108950

PATIENT
  Sex: Female
  Weight: 90 kg

DRUGS (15)
  1. REMICADE [Suspect]
     Indication: RHEUMATOID ARTHRITIS
     Route: 042
  2. METHOTREXATE [Concomitant]
  3. BENDROFLUAZIDE [Concomitant]
  4. CARDURA [Concomitant]
  5. CO-PROXAMOL [Concomitant]
  6. DIHYDROCODEINE [Concomitant]
  7. FELODIPINE [Concomitant]
  8. FOLIC ACID [Concomitant]
  9. IMIPRAMINE [Concomitant]
  10. GTN SPRAY [Concomitant]
  11. MELOXICAM [Concomitant]
  12. PLAQUENIL [Concomitant]
  13. RANITIDINE HCL [Concomitant]
  14. SIMVASTATIN [Concomitant]
  15. LEVOTHYROXINE SODIUM [Concomitant]

REACTIONS (1)
  - RECTAL CANCER [None]
